FAERS Safety Report 6486765-6 (Version None)
Quarter: 2009Q4

REPORT INFORMATION
  Report Type: 
  Country: None (occurrence: None)
  Receive Date: 20091210
  Receipt Date: 20091202
  Transmission Date: 20100525
  Serious: Yes (Hospitalization)
  Sender: FDA-Public Use
  Company Number: GB-WYE-G05040809

PATIENT
  Age: 63 Year
  Sex: Male

DRUGS (11)
  1. IBUPROFEN [Suspect]
     Route: 048
     Dates: start: 20090420, end: 20090602
  2. CYCLIZINE [Concomitant]
     Route: 048
  3. DIAZEPAM [Concomitant]
     Route: 048
  4. ATENOLOL [Concomitant]
     Dosage: UNKNOWN
     Dates: end: 20090606
  5. ATENOLOL [Concomitant]
     Dosage: UNKNOWN
     Dates: start: 20090607
  6. OXYCODONE [Concomitant]
     Route: 048
  7. OXYCONTIN [Concomitant]
     Route: 048
  8. ADCAL [Concomitant]
     Dosage: UNKNOWN
     Dates: end: 20090606
  9. ADCAL [Concomitant]
     Dosage: UNKNOWN
     Dates: start: 20090607
  10. PREDNISOLONE [Suspect]
     Dosage: UNKNOWN
  11. OMEPRAZOLE [Concomitant]
     Route: 048

REACTIONS (1)
  - RENAL IMPAIRMENT [None]
